FAERS Safety Report 24728422 (Version 1)
Quarter: 2024Q4

REPORT INFORMATION
  Report Type: Report from Study
  Country: TH (occurrence: TH)
  Receive Date: 20241212
  Receipt Date: 20241212
  Transmission Date: 20250115
  Serious: Yes (Hospitalization)
  Sender: ALEXION PHARMACEUTICALS
  Company Number: TH-ASTRAZENECA-202409ASI009371TH

PATIENT
  Age: 57 Year

DRUGS (1)
  1. DURVALUMAB [Suspect]
     Active Substance: DURVALUMAB
     Indication: Brachytherapy
     Dosage: 1500 MILLIGRAM

REACTIONS (1)
  - Haematological infection [Unknown]
